FAERS Safety Report 10073872 (Version 1)
Quarter: 2014Q2

REPORT INFORMATION
  Report Type: Report from Study
  Country: US (occurrence: US)
  Receive Date: 20140411
  Receipt Date: 20140411
  Transmission Date: 20141212
  Serious: Yes (Other)
  Sender: FDA-Public Use
  Company Number: US-ABBVIE-14P-163-1222353-00

PATIENT
  Sex: Female
  Weight: 56.3 kg

DRUGS (11)
  1. HUMIRA [Suspect]
     Indication: RHEUMATOID ARTHRITIS
     Route: 058
  2. HUMIRA [Suspect]
     Route: 058
     Dates: start: 201309, end: 201312
  3. PREDNISONE [Concomitant]
     Indication: PRODUCT USED FOR UNKNOWN INDICATION
  4. OXYCODONE [Concomitant]
     Indication: PRODUCT USED FOR UNKNOWN INDICATION
  5. ADVIL [Concomitant]
     Indication: PRODUCT USED FOR UNKNOWN INDICATION
  6. CALCIUM [Concomitant]
     Indication: PRODUCT USED FOR UNKNOWN INDICATION
     Dosage: UNKNOWN FREQUENCY
  7. VITAMIN D6 [Concomitant]
     Indication: PRODUCT USED FOR UNKNOWN INDICATION
     Dosage: DAILY
  8. VITAMIN D12 [Concomitant]
     Indication: PRODUCT USED FOR UNKNOWN INDICATION
     Dosage: DAILY
  9. PRILOSEC [Concomitant]
     Indication: ABDOMINAL PAIN UPPER
  10. ENBREL [Concomitant]
     Indication: PRODUCT USED FOR UNKNOWN INDICATION
  11. HYDROCODONE [Concomitant]
     Indication: PRODUCT USED FOR UNKNOWN INDICATION

REACTIONS (16)
  - Osteoporosis [Unknown]
  - Intervertebral disc compression [Unknown]
  - Osteoporosis [Unknown]
  - Fall [Unknown]
  - Skin cancer [Unknown]
  - Cataract [Recovered/Resolved]
  - Cataract [Recovered/Resolved]
  - Arthralgia [Unknown]
  - Sinus disorder [Unknown]
  - Sinus headache [Unknown]
  - Rhinorrhoea [Unknown]
  - Macular degeneration [Unknown]
  - Abdominal pain upper [Unknown]
  - Rheumatoid arthritis [Unknown]
  - Vision blurred [Unknown]
  - Swelling [Not Recovered/Not Resolved]
